FAERS Safety Report 6984621-8 (Version None)
Quarter: 2010Q3

REPORT INFORMATION
  Report Type: 
  Country: None (occurrence: None)
  Receive Date: 20100915
  Receipt Date: 20100907
  Transmission Date: 20110219
  Serious: Yes (Hospitalization)
  Sender: FDA-Public Use
  Company Number: FR-PFIZER INC-2010112563

PATIENT
  Age: 77 Year
  Sex: Female

DRUGS (4)
  1. SOLU-MEDROL [Suspect]
     Dosage: 120 MG A DAY
     Route: 042
     Dates: end: 20100830
  2. RANITIDINE HCL [Suspect]
     Dosage: 50 MG A DAY
     Route: 042
     Dates: end: 20100830
  3. ZOFRAN [Suspect]
     Dosage: 8 MG A DAY
     Route: 042
     Dates: end: 20100830
  4. POLARAMINE [Suspect]
     Dosage: UNK
     Route: 042
     Dates: end: 20100830

REACTIONS (2)
  - HYPOTENSION [None]
  - SHOCK [None]
